FAERS Safety Report 6502650-5 (Version None)
Quarter: 2009Q4

REPORT INFORMATION
  Report Type: 
  Country: None (occurrence: None)
  Receive Date: 20091127
  Receipt Date: 20090812
  Transmission Date: 20100525
  Serious: No
  Sender: FDA-Public Use
  Company Number: 001525

PATIENT

DRUGS (1)
  1. LACOSAMIDE [Suspect]
     Indication: HEADACHE
     Dosage: (200 MG IV  (30 MINUTE INFUSION) INTRAVENOUS (NOT OTHERWISE SPECIFIED))
     Route: 042

REACTIONS (2)
  - CHEST PAIN [None]
  - OFF LABEL USE [None]
